FAERS Safety Report 19854553 (Version 3)
Quarter: 2021Q4

REPORT INFORMATION
  Report Type: Spontaneous
  Country: JP (occurrence: JP)
  Receive Date: 20210920
  Receipt Date: 20211214
  Transmission Date: 20220303
  Serious: Yes (Death, Hospitalization, Congenital Anomaly, Other)
  Sender: FDA-Public Use
  Company Number: JP-TAKEDA-2021TJP088293

PATIENT
  Age: 74 Year
  Sex: Female
  Weight: 54.3 kg

DRUGS (4)
  1. VECTIBIX [Suspect]
     Active Substance: PANITUMUMAB
     Indication: Rectal cancer stage IV
     Dosage: 350 MILLIGRAM
     Route: 041
     Dates: start: 20210831, end: 20210831
  2. IRINOTECAN [Suspect]
     Active Substance: IRINOTECAN
     Indication: Rectal cancer stage IV
     Dosage: 160 MILLIGRAM
     Route: 042
     Dates: start: 20210831, end: 20210831
  3. DEXAMETHASONE SODIUM PHOSPHATE [Concomitant]
     Active Substance: DEXAMETHASONE SODIUM PHOSPHATE
     Indication: Rectal cancer stage IV
     Dosage: 9.9 MILLIGRAM
     Route: 042
     Dates: start: 20210831, end: 20210831
  4. GRANISETRON [Concomitant]
     Active Substance: GRANISETRON
     Indication: Rectal cancer stage IV
     Dosage: 3 MILLIGRAM
     Route: 042
     Dates: start: 20210831, end: 20210831

REACTIONS (5)
  - Rectal cancer stage IV [Fatal]
  - Febrile neutropenia [Recovering/Resolving]
  - Platelet count decreased [Recovering/Resolving]
  - Diarrhoea [Unknown]
  - Decreased appetite [Unknown]

NARRATIVE: CASE EVENT DATE: 20210903
